FAERS Safety Report 23882190 (Version 2)
Quarter: 2024Q3

REPORT INFORMATION
  Report Type: Spontaneous
  Country: US (occurrence: US)
  Receive Date: 20240521
  Receipt Date: 20240816
  Transmission Date: 20241016
  Serious: No
  Sender: SANOFI AVENTIS
  Company Number: US-SA-SAC20240520000073

PATIENT
  Age: 75 Year
  Sex: Female
  Weight: 60.3 kg

DRUGS (44)
  1. DUPIXENT [Suspect]
     Active Substance: DUPILUMAB
     Indication: Asthma
     Dosage: 300 MG, QOW
     Route: 058
  2. SODIUM CHLORIDE [Concomitant]
     Active Substance: SODIUM CHLORIDE
  3. SODIUM CHLORIDE [Concomitant]
     Active Substance: SODIUM CHLORIDE
  4. LIDOCAINE [Concomitant]
     Active Substance: LIDOCAINE
  5. LIDOCAINE [Concomitant]
     Active Substance: LIDOCAINE
  6. IBUPROFEN [Concomitant]
     Active Substance: IBUPROFEN
  7. IBUPROFEN [Concomitant]
     Active Substance: IBUPROFEN
  8. EPINEPHRINE [Concomitant]
     Active Substance: EPINEPHRINE
  9. EPINEPHRINE [Concomitant]
     Active Substance: EPINEPHRINE
  10. SODIUM CHLORIDE [Concomitant]
     Active Substance: SODIUM CHLORIDE
  11. CALCIUM [Concomitant]
     Active Substance: CALCIUM
  12. CALCIUM [Concomitant]
     Active Substance: CALCIUM
  13. DIPHENHYDRAMINE HYDROCHLORIDE [Concomitant]
     Active Substance: DIPHENHYDRAMINE HYDROCHLORIDE
  14. DIPHENHYDRAMINE HYDROCHLORIDE [Concomitant]
     Active Substance: DIPHENHYDRAMINE HYDROCHLORIDE
  15. HYQVIA [Concomitant]
     Active Substance: HUMAN IMMUNOGLOBULIN G\HYALURONIDASE (HUMAN RECOMBINANT)
  16. HYQVIA [Concomitant]
     Active Substance: HUMAN IMMUNOGLOBULIN G\HYALURONIDASE (HUMAN RECOMBINANT)
  17. HYDROCHLOROTHIAZIDE [Concomitant]
     Active Substance: HYDROCHLOROTHIAZIDE
  18. HYDROCHLOROTHIAZIDE [Concomitant]
     Active Substance: HYDROCHLOROTHIAZIDE
  19. ATENOLOL [Concomitant]
     Active Substance: ATENOLOL
  20. ATENOLOL [Concomitant]
     Active Substance: ATENOLOL
  21. MELATONIN [Concomitant]
     Active Substance: MELATONIN
  22. MELATONIN [Concomitant]
     Active Substance: MELATONIN
  23. FAMOTIDINE [Concomitant]
     Active Substance: FAMOTIDINE
  24. FAMOTIDINE [Concomitant]
     Active Substance: FAMOTIDINE
  25. ALBUTEROL SULFATE [Concomitant]
     Active Substance: ALBUTEROL SULFATE
  26. ALBUTEROL SULFATE [Concomitant]
     Active Substance: ALBUTEROL SULFATE
  27. TRELEGY ELLIPTA [Concomitant]
     Active Substance: FLUTICASONE FUROATE\UMECLIDINIUM BROMIDE\VILANTEROL TRIFENATATE
  28. TRELEGY ELLIPTA [Concomitant]
     Active Substance: FLUTICASONE FUROATE\UMECLIDINIUM BROMIDE\VILANTEROL TRIFENATATE
  29. OMEPRAZOLE [Concomitant]
     Active Substance: OMEPRAZOLE
  30. OMEPRAZOLE [Concomitant]
     Active Substance: OMEPRAZOLE
  31. ROSUVASTATIN CALCIUM [Concomitant]
     Active Substance: ROSUVASTATIN CALCIUM
  32. ROSUVASTATIN CALCIUM [Concomitant]
     Active Substance: ROSUVASTATIN CALCIUM
  33. TRAZODONE HCL [Concomitant]
     Active Substance: TRAZODONE HYDROCHLORIDE
  34. TRAZODONE HCL [Concomitant]
     Active Substance: TRAZODONE HYDROCHLORIDE
  35. MONTE [Concomitant]
  36. DIPHENHYDRAMINE HYDROCHLORIDE [Concomitant]
     Active Substance: DIPHENHYDRAMINE HYDROCHLORIDE
  37. CHONDROITIN SULFATE A\GLUCOSAMINE [Concomitant]
     Active Substance: CHONDROITIN SULFATE A\GLUCOSAMINE
  38. MONTELUKAST SODIUM [Concomitant]
     Active Substance: MONTELUKAST\MONTELUKAST SODIUM
  39. MOMETASONE FUROATE [Concomitant]
     Active Substance: MOMETASONE FUROATE
  40. TOBRAMYCIN SULFATE [Concomitant]
     Active Substance: TOBRAMYCIN SULFATE
  41. PROBIOTICS NOS [Concomitant]
     Active Substance: PROBIOTICS NOS
  42. SUPHEDRINE [Concomitant]
     Active Substance: PSEUDOEPHEDRINE HYDROCHLORIDE
  43. CHLORIDE SODIUM [Concomitant]
  44. HYDROCHLOROTHIAZIDE\TRIAMTERENE [Concomitant]
     Active Substance: HYDROCHLOROTHIAZIDE\TRIAMTERENE

REACTIONS (4)
  - Cough [Unknown]
  - Muscle spasms [Unknown]
  - Lung disorder [Unknown]
  - COVID-19 [Not Recovered/Not Resolved]

NARRATIVE: CASE EVENT DATE: 20240101
